FAERS Safety Report 6132777-1 (Version None)
Quarter: 2009Q1

REPORT INFORMATION
  Report Type: 
  Country: None (occurrence: None)
  Receive Date: 20090325
  Receipt Date: 20090325
  Transmission Date: 20090719
  Serious: Yes (Other)
  Sender: FDA-Public Use
  Company Number: None

PATIENT
  Age: 25 Year
  Sex: Male

DRUGS (1)
  1. RISPERIDONE [Suspect]
     Dosage: 4 MG BID PO
     Route: 048
     Dates: start: 20081216, end: 20090311

REACTIONS (4)
  - DYSTONIA [None]
  - SALIVARY HYPERSECRETION [None]
  - SWOLLEN TONGUE [None]
  - VISION BLURRED [None]
